FAERS Safety Report 6904484-6 (Version None)
Quarter: 2010Q3

REPORT INFORMATION
  Report Type: 
  Country: None (occurrence: None)
  Receive Date: 20100804
  Receipt Date: 20090529
  Transmission Date: 20110219
  Serious: No
  Sender: FDA-Public Use
  Company Number: US-PFIZER INC-2009216438

PATIENT
  Sex: Female

DRUGS (1)
  1. LYRICA [Suspect]

REACTIONS (11)
  - AGITATION [None]
  - CONFUSIONAL STATE [None]
  - EAR PAIN [None]
  - FACIAL PAIN [None]
  - FATIGUE [None]
  - GAIT DISTURBANCE [None]
  - HEADACHE [None]
  - MEMORY IMPAIRMENT [None]
  - OROPHARYNGEAL PAIN [None]
  - PAIN OF SKIN [None]
  - SWELLING FACE [None]
